FAERS Safety Report 24664402 (Version 3)
Quarter: 2025Q1

REPORT INFORMATION
  Report Type: Spontaneous
  Country: US (occurrence: US)
  Receive Date: 20241126
  Receipt Date: 20250228
  Transmission Date: 20250409
  Serious: Yes (Disabling, Other)
  Sender: CHATTEM
  Company Number: US-OPELLA-2024OHG039119

PATIENT
  Sex: Male

DRUGS (1)
  1. MENTHOL [Suspect]
     Active Substance: MENTHOL
     Indication: Product used for unknown indication

REACTIONS (3)
  - Epithelioid mesothelioma [Unknown]
  - Exposure to chemical pollution [Unknown]
  - Occupational exposure to toxic agent [Unknown]

NARRATIVE: CASE EVENT DATE: 20240701
